FAERS Safety Report 16089685 (Version 1)
Quarter: 2019Q1

REPORT INFORMATION
  Report Type: Spontaneous
  Country: US (occurrence: US)
  Receive Date: 20190319
  Receipt Date: 20190319
  Transmission Date: 20190418
  Serious: Yes (Death)
  Sender: FDA-Public Use
  Company Number: US-ALLERGAN-1911214US

PATIENT
  Sex: Female

DRUGS (8)
  1. TIZANIDINE. [Suspect]
     Active Substance: TIZANIDINE
     Indication: SUSPECTED SUICIDE ATTEMPT
     Route: 048
  2. AMPHETAMINE [Suspect]
     Active Substance: AMPHETAMINE
     Indication: SUSPECTED SUICIDE ATTEMPT
     Route: 048
  3. TRAMADOL. [Suspect]
     Active Substance: TRAMADOL
     Indication: SUSPECTED SUICIDE ATTEMPT
     Route: 048
  4. QUETIAPINE. [Suspect]
     Active Substance: QUETIAPINE
     Indication: SUSPECTED SUICIDE ATTEMPT
     Route: 048
  5. BENZODIAZEPINE [Suspect]
     Active Substance: BENZODIAZEPINE
     Indication: SUSPECTED SUICIDE ATTEMPT
     Route: 048
  6. MORPHINE SULFATE UNK [Suspect]
     Active Substance: MORPHINE SULFATE
     Indication: SUSPECTED SUICIDE ATTEMPT
     Route: 048
  7. ACETAMINOPHEN/OXYCODONE [Suspect]
     Active Substance: ACETAMINOPHEN\OXYCODONE HYDROCHLORIDE
     Indication: SUSPECTED SUICIDE ATTEMPT
     Route: 048
  8. OXYCODONE [Suspect]
     Active Substance: OXYCODONE
     Indication: SUSPECTED SUICIDE ATTEMPT
     Route: 048

REACTIONS (2)
  - Off label use [Unknown]
  - Suspected suicide attempt [Fatal]
